FAERS Safety Report 25602184 (Version 1)
Quarter: 2025Q3

REPORT INFORMATION
  Report Type: Spontaneous
  Country: US (occurrence: US)
  Receive Date: 20250724
  Receipt Date: 20250724
  Transmission Date: 20251021
  Serious: Yes (Hospitalization, Other)
  Sender: SANOFI AVENTIS
  Company Number: US-SA-2025SA209973

PATIENT
  Age: 85 Year
  Sex: Male

DRUGS (2)
  1. DUPIXENT [Suspect]
     Active Substance: DUPILUMAB
     Indication: Urticaria
     Dosage: 300 MG, QOW
     Route: 058
     Dates: start: 20250507
  2. DUPIXENT [Suspect]
     Active Substance: DUPILUMAB
     Dates: start: 20250715

REACTIONS (9)
  - Pneumonia [Unknown]
  - Cellulitis [Unknown]
  - Urinary tract infection [Unknown]
  - Dementia [Unknown]
  - Dehydration [Unknown]
  - Dysstasia [Unknown]
  - Gait disturbance [Unknown]
  - Urticaria [Unknown]
  - Product use in unapproved indication [Unknown]

NARRATIVE: CASE EVENT DATE: 20250507
